FAERS Safety Report 5566337-8 (Version None)
Quarter: 2007Q4

REPORT INFORMATION
  Report Type: 
  Country: None (occurrence: None)
  Receive Date: 20071219
  Receipt Date: 20071212
  Transmission Date: 20080405
  Serious: Yes (Death)
  Sender: FDA-Public Use
  Company Number: JP-BRISTOL-MYERS SQUIBB COMPANY-14017354

PATIENT
  Age: 5 Decade
  Sex: Male

DRUGS (3)
  1. REYATAZ [Suspect]
     Indication: HIV INFECTION
     Route: 048
  2. TRUVADA [Concomitant]
     Route: 048
  3. NORVIR [Concomitant]
     Route: 048

REACTIONS (2)
  - IMMUNE RECONSTITUTION SYNDROME [None]
  - LYMPHOMA [None]
